FAERS Safety Report 7632929-5 (Version None)
Quarter: 2011Q3

REPORT INFORMATION
  Report Type: 
  Country: None (occurrence: None)
  Receive Date: 20110725
  Receipt Date: 20110713
  Transmission Date: 20111222
  Serious: Yes (Hospitalization)
  Sender: FDA-Public Use
  Company Number: JP-AMGEN-US339174

PATIENT
  Age: 59 Year
  Sex: Female
  Weight: 70 kg

DRUGS (23)
  1. ENBREL [Suspect]
     Indication: RHEUMATOID ARTHRITIS
     Dosage: 25 MG, 2 TIMES/WK
     Route: 058
     Dates: start: 20080904, end: 20081103
  2. PIOGLITAZONE HCL [Concomitant]
     Dosage: UNK
     Route: 048
     Dates: start: 20080904
  3. RIBOFLAVIN TAB [Concomitant]
     Dosage: 20 MG, BID
     Route: 048
     Dates: start: 20080904
  4. OMEPRAZOLE [Concomitant]
     Dosage: UNK
     Route: 048
     Dates: start: 20080904
  5. SULFASALAZINE [Concomitant]
     Dosage: UNK
     Route: 048
     Dates: start: 20070101
  6. TACROLIMUS [Concomitant]
     Dosage: UNK
     Route: 048
     Dates: start: 20070101, end: 20080903
  7. PREDNISOLONE [Concomitant]
     Dosage: UNK
     Route: 048
     Dates: start: 20081204, end: 20090304
  8. PREDNISOLONE [Concomitant]
     Dosage: UNK
     Route: 048
     Dates: start: 20070101, end: 20080819
  9. PREDNISOLONE [Concomitant]
     Dosage: UNK
     Route: 048
     Dates: start: 20081204, end: 20090107
  10. PREDNISOLONE [Concomitant]
     Dosage: UNK
     Route: 048
     Dates: start: 20090108, end: 20090304
  11. ALENDRONATE SODIUM [Concomitant]
     Dosage: UNK
     Route: 048
     Dates: start: 20080904, end: 20090304
  12. ISONIAZID [Concomitant]
     Dosage: UNK
     Route: 048
     Dates: start: 20080904
  13. PREDNISOLONE [Concomitant]
     Dosage: UNK
     Route: 048
     Dates: start: 20081204, end: 20090107
  14. ENBREL [Suspect]
     Dosage: 25 MG, QWK
     Route: 058
     Dates: start: 20081105, end: 20090305
  15. TACROLIMUS [Concomitant]
     Dosage: UNK
     Route: 048
     Dates: start: 20080904
  16. MEXILETINE HYDROCHLORIDE [Concomitant]
     Dosage: UNK
     Route: 048
     Dates: start: 20080904, end: 20090304
  17. INDOMETHACIN [Concomitant]
     Dosage: UNK UNK, BID
     Route: 048
     Dates: start: 20080904
  18. CELESTAMINE TAB [Concomitant]
     Dosage: UNK
     Route: 048
     Dates: start: 20080904
  19. PREDNISOLONE [Concomitant]
     Dosage: UNK
     Route: 048
     Dates: start: 20090108, end: 20090304
  20. PREDNISOLONE [Concomitant]
     Dosage: UNK
     Route: 048
     Dates: start: 20080820, end: 20081203
  21. POLYCARBOPHIL CALCIUM [Concomitant]
     Dosage: UNK
     Route: 048
     Dates: start: 20080904, end: 20090304
  22. PREDNISOLONE [Concomitant]
     Dosage: UNK
     Dates: start: 20070101, end: 20080819
  23. PREDNISOLONE [Concomitant]
     Dosage: UNK
     Route: 048
     Dates: start: 20081204, end: 20090304

REACTIONS (3)
  - VASCULITIS [None]
  - DEMYELINATION [None]
  - MYELITIS [None]
